FAERS Safety Report 24793495 (Version 2)
Quarter: 2025Q1

REPORT INFORMATION
  Report Type: Spontaneous
  Country: US (occurrence: US)
  Receive Date: 20241231
  Receipt Date: 20250219
  Transmission Date: 20250409
  Serious: No
  Sender: EYWA PHARMA INC.
  Company Number: US-Eywa Pharma Inc.-2168093

PATIENT

DRUGS (6)
  1. BACLOFEN [Suspect]
     Active Substance: BACLOFEN
     Indication: Product used for unknown indication
  2. GABAPENTIN [Suspect]
     Active Substance: GABAPENTIN
  3. VITAMIN B12 [Suspect]
     Active Substance: CYANOCOBALAMIN
  4. VITAMIN D [Suspect]
     Active Substance: VITAMIN D NOS
  5. UNSPECIFIED INGREDIENT [Suspect]
     Active Substance: UNSPECIFIED INGREDIENT
  6. TIZANIDINE [Suspect]
     Active Substance: TIZANIDINE

REACTIONS (1)
  - Feeling abnormal [Unknown]
